FAERS Safety Report 5958580-0 (Version None)
Quarter: 2008Q4

REPORT INFORMATION
  Report Type: 
  Country: None (occurrence: None)
  Receive Date: 20081119
  Receipt Date: 20081107
  Transmission Date: 20090506
  Serious: Yes (Hospitalization)
  Sender: FDA-Public Use
  Company Number: ES-GILEAD-2008-0018997

PATIENT
  Age: 44 Year
  Sex: Male

DRUGS (4)
  1. VIREAD [Suspect]
     Indication: HIV INFECTION
     Route: 048
     Dates: start: 20020306, end: 20080603
  2. KIVEXA [Suspect]
     Indication: HIV INFECTION
     Route: 048
     Dates: start: 20020306, end: 20080603
  3. AMERIDE [Concomitant]
     Indication: HYPERTENSION
  4. AMLODIPINO [Concomitant]
     Indication: HYPERTENSION

REACTIONS (1)
  - ACUTE MYOCARDIAL INFARCTION [None]
